FAERS Safety Report 7395273-X (Version None)
Quarter: 2011Q2

REPORT INFORMATION
  Report Type: 
  Country: None (occurrence: None)
  Receive Date: 20110405
  Receipt Date: 20110329
  Transmission Date: 20111010
  Serious: Yes (Hospitalization)
  Sender: FDA-Public Use
  Company Number: GB-PFIZER INC-GBWYE198317JAN07

PATIENT
  Age: 30 Year
  Sex: Female
  Weight: 84 kg

DRUGS (6)
  1. EFFEXOR [Suspect]
     Dosage: UNKNOWN
     Route: 048
  2. CLOZARIL [Suspect]
     Indication: SCHIZOPHRENIA
     Dosage: 325.0 MG, 1X/DAY
     Route: 048
     Dates: start: 20051228
  3. CLOZARIL [Suspect]
     Dosage: 350 MG, 1X/DAY
  4. CLOZARIL [Suspect]
     Dosage: OVERDOSE OF 1400MG IN 1 DAY
     Route: 048
     Dates: start: 20060801
  5. ALCOHOL [Suspect]
     Dosage: UNKNOWN
     Route: 065
     Dates: start: 20060801
  6. EFFEXOR [Suspect]
     Dosage: OVERDOSE OF 11 TABLETS OF 75MG
     Route: 048
     Dates: start: 20060801

REACTIONS (5)
  - STAPHYLOCOCCAL INFECTION [None]
  - INTENTIONAL OVERDOSE [None]
  - RHINORRHOEA [None]
  - NEUROLEPTIC MALIGNANT SYNDROME [None]
  - SUICIDE ATTEMPT [None]
